FAERS Safety Report 18723071 (Version 1)
Quarter: 2021Q1

REPORT INFORMATION
  Report Type: Spontaneous
  Country: US (occurrence: US)
  Receive Date: 20210109
  Receipt Date: 20210109
  Transmission Date: 20210419
  Serious: No
  Sender: FDA-Public Use
  Company Number: None

PATIENT
  Age: 78 Year
  Sex: Female
  Weight: 60 kg

DRUGS (9)
  1. REMDESIVIR. [Suspect]
     Active Substance: REMDESIVIR
     Indication: COVID-19
     Route: 042
     Dates: start: 20210105, end: 20210108
  2. APIXABAN 5 MG [Concomitant]
     Active Substance: APIXABAN
     Dates: start: 20210105
  3. DEXAMETHASONE 6 MG [Concomitant]
     Dates: start: 20210105
  4. MONTELUKAST 10 MG [Concomitant]
     Active Substance: MONTELUKAST SODIUM
     Dates: start: 20210105
  5. FAMOTIDINE 20 MG [Concomitant]
     Active Substance: FAMOTIDINE
     Dates: start: 20210105
  6. ATORVASTATIN 40 MG [Concomitant]
     Active Substance: ATORVASTATIN
     Dates: start: 20210105, end: 20210107
  7. ALPRAZOLAM 1 MG [Concomitant]
     Active Substance: ALPRAZOLAM
     Dates: start: 20210105
  8. ONDANSETRON 4 MG [Concomitant]
     Active Substance: ONDANSETRON
     Dates: start: 20210105
  9. ACETAMINOPHEN HYDROCODONE 325?5 MG [Concomitant]
     Dates: start: 20210105

REACTIONS (1)
  - Liver function test increased [None]

NARRATIVE: CASE EVENT DATE: 20210108
